FAERS Safety Report 7788681-6 (Version None)
Quarter: 2011Q3

REPORT INFORMATION
  Report Type: 
  Country: None (occurrence: None)
  Receive Date: 20110930
  Receipt Date: 20110919
  Transmission Date: 20111222
  Serious: Yes (Death, Hospitalization)
  Sender: FDA-Public Use
  Company Number: US-BAXTER-2011BH028244

PATIENT
  Age: 21 Month
  Sex: Female

DRUGS (2)
  1. DIANEAL [Suspect]
     Indication: PERITONEAL DIALYSIS
     Route: 033
     Dates: start: 20110601, end: 20110901
  2. DIANEAL [Suspect]
     Indication: PERITONEAL DIALYSIS
     Route: 033
     Dates: start: 20110601

REACTIONS (7)
  - HYPOTENSION [None]
  - HYPOTHERMIA [None]
  - PYREXIA [None]
  - CULTURE POSITIVE [None]
  - PERITONEAL EFFLUENT ABNORMAL [None]
  - SEPSIS [None]
  - MULTI-ORGAN FAILURE [None]
